FAERS Safety Report 4719193-1 (Version None)
Quarter: 2005Q3

REPORT INFORMATION
  Report Type: 
  Country: None (occurrence: None)
  Receive Date: 20050720
  Receipt Date: 20050629
  Transmission Date: 20060218
  Serious: Yes (Hospitalization)
  Sender: FDA-Public Use
  Company Number: US_0506118202

PATIENT
  Age: 48 Year
  Sex: Male

DRUGS (6)
  1. CYMBALTA [Suspect]
     Dosage: 60 MG/1 DAY
     Dates: start: 20050502, end: 20050515
  2. TREILEPTAL (OXCARBAZEPINE0 [Concomitant]
  3. KETOROLAC TROMETHAMINE [Concomitant]
  4. CELEBREX [Concomitant]
  5. TIZANIDINE HCL [Concomitant]
  6. BETAMETHASONE DIPROPIOANTE [Concomitant]

REACTIONS (1)
  - DRUG ERUPTION [None]
